FAERS Safety Report 21923149 (Version 1)
Quarter: 2023Q1

REPORT INFORMATION
  Report Type: Spontaneous
  Country: None (occurrence: US)
  Receive Date: 20230129
  Receipt Date: 20230129
  Transmission Date: 20230418
  Serious: Yes (Other)
  Sender: FDA-Public Use
  Company Number: US-Provepharm-2137219

PATIENT
  Age: 81 Year
  Sex: Male

DRUGS (2)
  1. PROVAYBLUE [Suspect]
     Active Substance: METHYLENE BLUE
     Route: 040
  2. ISOBUTYL NITRITE [Suspect]
     Active Substance: ISOBUTYL NITRITE
     Route: 048

REACTIONS (3)
  - Discoloured vomit [Unknown]
  - Pneumonia aspiration [Unknown]
  - Chromaturia [Unknown]
